FAERS Safety Report 8777505 (Version 4)
Quarter: 2012Q4

REPORT INFORMATION
  Report Type: Report from Study
  Country: CA (occurrence: CA)
  Receive Date: 20120911
  Receipt Date: 20121023
  Transmission Date: 20130627
  Serious: Yes (Hospitalization, Other)
  Sender: FDA-Public Use
  Company Number: CA-ABBOTT-12P-028-0977039-00

PATIENT
  Sex: Male
  Weight: 65.83 kg

DRUGS (2)
  1. LUPRON DEPOT [Suspect]
     Indication: PROSTATE CANCER
     Dates: start: 20120305
  2. FLOMAX CR [Concomitant]
     Indication: PROSTATOMEGALY
     Dosage: daily orally at bedtime
     Route: 048
     Dates: start: 20120816

REACTIONS (1)
  - Deep vein thrombosis [Unknown]
